FAERS Safety Report 6471256-9 (Version None)
Quarter: 2009Q4

REPORT INFORMATION
  Report Type: 
  Country: None (occurrence: None)
  Receive Date: 20091203
  Receipt Date: 20080206
  Transmission Date: 20100525
  Serious: Yes (Hospitalization)
  Sender: FDA-Public Use
  Company Number: TR-ELI_LILLY_AND_COMPANY-TR200802003591

PATIENT
  Age: 40 Year
  Sex: Female
  Weight: 85 kg

DRUGS (5)
  1. HUMALOG MIX 75/25 [Suspect]
     Indication: TYPE 2 DIABETES MELLITUS
     Dosage: 40 UNITS/MORNING AND 20 UNITS/EVENING
     Route: 058
     Dates: start: 20050101
  2. HUMALOG MIX 75/25 [Suspect]
     Dosage: 20 U, EACH EVENING
     Route: 058
     Dates: start: 20050101
  3. DIAMICRON [Concomitant]
     Indication: TYPE 2 DIABETES MELLITUS
     Dosage: TWICE DAILY
     Route: 048
     Dates: start: 19880101
  4. NEURONTIN [Concomitant]
     Dosage: 4 TIMES DAILY
     Route: 048
     Dates: start: 20040101
  5. LOSARTAN POTASSIUM AND HYDROCHLOROTHIAZIDE [Concomitant]
     Indication: HYPERTENSION
     Dosage: ONCE DAILY
     Route: 048
     Dates: start: 20070101

REACTIONS (2)
  - TOE AMPUTATION [None]
  - WEIGHT INCREASED [None]
